FAERS Safety Report 6796179-7 (Version None)
Quarter: 2010Q2

REPORT INFORMATION
  Report Type: 
  Country: None (occurrence: None)
  Receive Date: 20100625
  Receipt Date: 20100618
  Transmission Date: 20101027
  Serious: Yes (Other)
  Sender: FDA-Public Use
  Company Number: US-AMGEN-QUU419404

PATIENT
  Sex: Male

DRUGS (13)
  1. NPLATE [Suspect]
     Indication: IDIOPATHIC THROMBOCYTOPENIC PURPURA
     Dates: start: 20100304
  2. ACTOS [Concomitant]
  3. GLIMEPIRIDE [Concomitant]
  4. JANUVIA [Concomitant]
  5. VYTORIN [Concomitant]
  6. FLOMAX [Concomitant]
  7. SERTRALINE HCL [Concomitant]
  8. DOCUSATE [Concomitant]
  9. LISINOPRIL [Concomitant]
  10. MORPHINE [Concomitant]
  11. BETHANECHOL [Concomitant]
  12. VICODIN [Concomitant]
  13. INSULIN [Concomitant]

REACTIONS (4)
  - PLATELET COUNT DECREASED [None]
  - PNEUMONIA [None]
  - THERAPEUTIC RESPONSE DECREASED [None]
  - WHITE BLOOD CELL COUNT INCREASED [None]
